FAERS Safety Report 14926645 (Version 1)
Quarter: 2018Q2

REPORT INFORMATION
  Report Type: Other
  Country: DE (occurrence: DE)
  Receive Date: 20180523
  Receipt Date: 20180523
  Transmission Date: 20180711
  Serious: Yes (Death, Other)
  Sender: FDA-Public Use
  Company Number: DE-MACLEODS PHARMACEUTICALS US LTD-MAC2018013577

PATIENT

DRUGS (1)
  1. LEVOFLOXACIN. [Suspect]
     Active Substance: LEVOFLOXACIN
     Indication: NASOPHARYNGITIS
     Dosage: 500 MILLIGRAM, QD
     Route: 048
     Dates: start: 20180318

REACTIONS (3)
  - Cardiac arrest [Fatal]
  - Arrhythmia [Fatal]
  - Cardiac failure [Fatal]
